FAERS Safety Report 6094733-1 (Version None)
Quarter: 2009Q1

REPORT INFORMATION
  Report Type: 
  Country: None (occurrence: None)
  Receive Date: 20090225
  Receipt Date: 20090209
  Transmission Date: 20090719
  Serious: Yes (Death)
  Sender: FDA-Public Use
  Company Number: 2009S1002236

PATIENT
  Age: 17 Year
  Sex: Male

DRUGS (5)
  1. VINCRISTINE [Suspect]
     Indication: EWING'S SARCOMA
  2. DOXORUBICIN HCL [Suspect]
     Indication: EWING'S SARCOMA
     Dosage: 12.5 MG/M**2;WEEKLY
  3. CYCLOPHOSPHAMIDE [Suspect]
     Indication: EWING'S SARCOMA
     Dosage: 400 MG/M**2;WEEKLY
  4. ETOPOSIDE [Suspect]
     Indication: EWING'S SARCOMA
     Dosage: 100 MG/M**2;WEEKLY
  5. IFOSFAMIDE [Suspect]
     Indication: EWING'S SARCOMA
     Dosage: 2400 MG/M**2;WEEKLY

REACTIONS (1)
  - ACUTE LYMPHOCYTIC LEUKAEMIA [None]
